FAERS Safety Report 10202334 (Version 1)
Quarter: 2014Q2

REPORT INFORMATION
  Report Type: Spontaneous
  Country: US (occurrence: US)
  Receive Date: 20140528
  Receipt Date: 20140528
  Transmission Date: 20141212
  Serious: No
  Sender: FDA-Public Use
  Company Number: US-BRISTOL-MYERS SQUIBB COMPANY-20402004

PATIENT
  Age: 39 Year
  Sex: Female
  Weight: 58.96 kg

DRUGS (3)
  1. GLUCOPHAGE [Suspect]
     Indication: POLYCYSTIC OVARIES
     Dates: start: 2014
  2. CALCIUM [Concomitant]
  3. MAGNESIUM [Concomitant]

REACTIONS (4)
  - Abdominal pain [Unknown]
  - Off label use [Unknown]
  - Diarrhoea [Unknown]
  - Flatulence [Unknown]
